FAERS Safety Report 9481898 (Version 2)
Quarter: 2013Q3

REPORT INFORMATION
  Report Type: Spontaneous
  Country: CA (occurrence: CA)
  Receive Date: 20130828
  Receipt Date: 20130910
  Transmission Date: 20140515
  Serious: Yes (Hospitalization, Other)
  Sender: FDA-Public Use
  Company Number: CA-ROCHE-1266783

PATIENT
  Sex: Female
  Weight: 57.2 kg

DRUGS (17)
  1. HERCEPTIN [Suspect]
     Indication: BREAST CANCER METASTATIC
     Route: 042
  2. FRAGMIN [Concomitant]
  3. ACETYLSALICYLIC ACID [Concomitant]
  4. ENABLEX [Concomitant]
  5. ATORVASTATIN [Concomitant]
  6. LACTULOSE [Concomitant]
     Route: 065
  7. LANSOPRAZOLE [Concomitant]
  8. DOMPERIDON [Concomitant]
  9. BACLOFEN [Concomitant]
  10. ACETAMINOFEN [Concomitant]
  11. ADVIL [Concomitant]
  12. FLUOXETIN [Concomitant]
  13. NORTRIPTYLINE [Concomitant]
  14. ZOPICLONE [Concomitant]
  15. CLONAZEPAM [Concomitant]
     Route: 065
  16. MELATONIN [Concomitant]
  17. VITAMIN C [Concomitant]

REACTIONS (4)
  - General physical health deterioration [Not Recovered/Not Resolved]
  - Ischaemic stroke [Unknown]
  - Dysphagia [Not Recovered/Not Resolved]
  - Gait disturbance [Not Recovered/Not Resolved]
